FAERS Safety Report 16936821 (Version 3)
Quarter: 2019Q4

REPORT INFORMATION
  Report Type: Report from Study
  Country: AE (occurrence: AE)
  Receive Date: 20191018
  Receipt Date: 20191115
  Transmission Date: 20200122
  Serious: Yes (Life-Threatening, Hospitalization)
  Sender: FDA-Public Use
  Company Number: NVSC2019AE006100

PATIENT
  Age: 4 Year
  Sex: Female
  Weight: 14 kg

DRUGS (1)
  1. JADENU [Suspect]
     Active Substance: DEFERASIROX
     Indication: IRON OVERLOAD
     Dosage: 360 MG, QD
     Route: 048
     Dates: start: 20190625, end: 201909

REACTIONS (1)
  - Eating disorder [Recovered/Resolved]

NARRATIVE: CASE EVENT DATE: 201909
